FAERS Safety Report 9499928 (Version 1)
Quarter: 2013Q3

REPORT INFORMATION
  Report Type: Spontaneous
  Country: US (occurrence: US)
  Receive Date: 20130905
  Receipt Date: 20130905
  Transmission Date: 20140515
  Serious: No
  Sender: FDA-Public Use
  Company Number: US-PFIZER INC-2013254520

PATIENT
  Sex: Male

DRUGS (1)
  1. JUNIOR STRENGTH ADVIL [Suspect]
     Dosage: 1 TABLET, SINGLE

REACTIONS (2)
  - Oral discomfort [Unknown]
  - Hypoaesthesia oral [Unknown]
